FAERS Safety Report 6510230-0 (Version None)
Quarter: 2009Q4

REPORT INFORMATION
  Report Type: 
  Country: None (occurrence: None)
  Receive Date: 20091217
  Receipt Date: 20091208
  Transmission Date: 20100525
  Serious: Yes (Hospitalization)
  Sender: FDA-Public Use
  Company Number: 2009SP041176

PATIENT
  Age: 47 Year
  Sex: Female
  Weight: 54 kg

DRUGS (5)
  1. DEXAMETHASONE [Suspect]
     Indication: PROPHYLAXIS OF NAUSEA AND VOMITING
     Dosage: 0.5 MG;QD;PO
     Route: 048
     Dates: start: 20091020, end: 20091026
  2. CISPLATIN [Suspect]
     Indication: NON-SMALL CELL LUNG CANCER
     Dosage: 116 MG;Q3W;IV
     Route: 042
     Dates: start: 20091006, end: 20091006
  3. ALIMTA [Suspect]
     Indication: NON-SMALL CELL LUNG CANCER
     Dosage: 775 MG;Q3W;IV
     Route: 042
     Dates: start: 20091006, end: 20091006
  4. HYDROMORPHONE [Concomitant]
  5. OMEPRAZOLE [Concomitant]

REACTIONS (4)
  - DYSPHAGIA [None]
  - MALIGNANT NEOPLASM PROGRESSION [None]
  - METASTASES TO LYMPH NODES [None]
  - ORAL CANDIDIASIS [None]
